FAERS Safety Report 5265683-5 (Version None)
Quarter: 2007Q1

REPORT INFORMATION
  Report Type: 
  Country: None (occurrence: None)
  Receive Date: 20061213
  Receipt Date: 20040315
  Transmission Date: 20070707
  Serious: Yes (Other)
  Sender: FDA-Public Use
  Company Number: 2004UW04942

PATIENT
  Age: 78 Year
  Sex: Female
  Weight: 51.7101 kg

DRUGS (4)
  1. IRESSA [Suspect]
     Indication: NON-SMALL CELL LUNG CANCER
     Dosage: 250 MG DAILY PO
     Route: 048
  2. DEPAKOTE [Concomitant]
  3. PROPRANOLOL [Concomitant]
  4. LEXAPRO [Concomitant]

REACTIONS (3)
  - ACNE [None]
  - FATIGUE [None]
  - NAIL DISORDER [None]
